FAERS Safety Report 16702740 (Version 1)
Quarter: 2019Q3

REPORT INFORMATION
  Report Type: Spontaneous
  Country: US (occurrence: US)
  Receive Date: 20190814
  Receipt Date: 20190814
  Transmission Date: 20191004
  Serious: Yes (Hospitalization)
  Sender: FDA-Public Use
  Company Number: US-COHERUS BIOSCIENCES, INC-2019US007801

PATIENT

DRUGS (5)
  1. UDENYCA [Suspect]
     Active Substance: PEGFILGRASTIM-CBQV
     Indication: INFECTION PROPHYLAXIS
     Dosage: 6 MG, UNK
     Route: 058
     Dates: start: 20190719
  2. DOXORUBICIN [Concomitant]
     Active Substance: DOXORUBICIN
     Indication: BLADDER CANCER
     Dosage: UNK
     Dates: start: 20190718
  3. CYCLOPHOSPHAMIDE. [Concomitant]
     Active Substance: CYCLOPHOSPHAMIDE
     Indication: BLADDER CANCER
     Dosage: UNK
     Dates: start: 20190718
  4. METHOTREXATE. [Concomitant]
     Active Substance: METHOTREXATE
     Indication: BLADDER CANCER
     Dosage: UNK
     Dates: start: 20190718
  5. VINBLASTINE [Concomitant]
     Active Substance: VINBLASTINE
     Indication: BLADDER CANCER
     Dosage: UNK
     Dates: start: 20190718

REACTIONS (1)
  - Neutropenic sepsis [Unknown]

NARRATIVE: CASE EVENT DATE: 20190723
